FAERS Safety Report 16839487 (Version 1)
Quarter: 2019Q3

REPORT INFORMATION
  Report Type: Spontaneous
  Country: GB (occurrence: GB)
  Receive Date: 20190923
  Receipt Date: 20190923
  Transmission Date: 20191005
  Serious: Yes (Hospitalization)
  Sender: FDA-Public Use
  Company Number: GB-MYLANLABS-2019M1087878

PATIENT
  Age: 70 Year
  Sex: Female

DRUGS (12)
  1. RAMIPRIL. [Concomitant]
     Active Substance: RAMIPRIL
     Dosage: UNK
  2. RANITIDINE. [Concomitant]
     Active Substance: RANITIDINE
     Dosage: UNK
  3. CO-AMOXICLAV                       /00756801/ [Concomitant]
     Active Substance: AMOXICILLIN\CLAVULANIC ACID
     Dosage: UNK
  4. ACETYLSALICYLIC ACID [Concomitant]
     Active Substance: ASPIRIN
     Dosage: UNK
  5. CODEINE [Suspect]
     Active Substance: CODEINE
     Indication: PAIN
     Dosage: UNK UNK, PRN (30 - 60MG FOUR TIMES A DAY)
     Route: 048
     Dates: start: 20190201, end: 20190405
  6. NOVOMIX [Concomitant]
     Active Substance: INSULIN ASPART
     Dosage: UNK
  7. PARACETAMOL [Concomitant]
     Active Substance: ACETAMINOPHEN
     Dosage: UNK
  8. ENOXAPARIN [Concomitant]
     Active Substance: ENOXAPARIN
     Dosage: UNK
  9. OMEPRAZOLE. [Suspect]
     Active Substance: OMEPRAZOLE
     Indication: DYSPEPSIA
     Dosage: 20 MILLIGRAM, QD (MORNING)
     Route: 048
     Dates: start: 20180601, end: 20190405
  10. NITROFURANTOIN. [Concomitant]
     Active Substance: NITROFURANTOIN
     Dosage: UNK
  11. INSULIN [Concomitant]
     Active Substance: INSULIN NOS
     Dosage: UNK
  12. BISOPROLOL [Concomitant]
     Active Substance: BISOPROLOL
     Dosage: UNK

REACTIONS (6)
  - Urinary tract infection [Unknown]
  - Hyponatraemia [Recovering/Resolving]
  - Abdominal distension [Unknown]
  - Constipation [Recovered/Resolved]
  - Hyperglycaemia [Unknown]
  - Vomiting [Unknown]

NARRATIVE: CASE EVENT DATE: 20190404
